FAERS Safety Report 7268026-0 (Version None)
Quarter: 2010Q4

REPORT INFORMATION
  Report Type: 
  Country: None (occurrence: None)
  Receive Date: 20101206
  Receipt Date: 20101111
  Transmission Date: 20110411
  Serious: No
  Sender: FDA-Public Use
  Company Number: 2010SP059746

PATIENT
  Age: 40 Year
  Sex: Male

DRUGS (1)
  1. SAPHRIS [Suspect]
     Indication: SCHIZOPHRENIA
     Dosage: 10 MG; BID; SL
     Route: 060

REACTIONS (4)
  - DROOLING [None]
  - INSOMNIA [None]
  - PROTRUSION TONGUE [None]
  - RESTLESSNESS [None]
